FAERS Safety Report 4287321-0 (Version None)
Quarter: 2004Q1

REPORT INFORMATION
  Report Type: 
  Country: None (occurrence: None)
  Receive Date: 20040126
  Receipt Date: 20030828
  Transmission Date: 20041129
  Serious: No
  Sender: FDA-Public Use
  Company Number: USA030639248

PATIENT
  Age: 87 Year
  Sex: Female
  Weight: 51 kg

DRUGS (7)
  1. FORTEO [Suspect]
     Indication: SPINAL FRACTURE
     Dosage: 20 UG EVERY OTHER DAY
     Dates: start: 20030401
  2. EFFEXOR [Concomitant]
  3. ATIVAN [Concomitant]
  4. RISPERDAL [Concomitant]
  5. TRAZADONE (TRAZODONE) [Concomitant]
  6. ENSURE [Concomitant]
  7. CALCIUM [Concomitant]

REACTIONS (11)
  - ANGINA PECTORIS [None]
  - BACK PAIN [None]
  - BLOOD PRESSURE INCREASED [None]
  - COUGH [None]
  - DECREASED APPETITE [None]
  - DIZZINESS [None]
  - DYSGEUSIA [None]
  - HEADACHE [None]
  - HEART RATE INCREASED [None]
  - HYPOTENSION [None]
  - NAUSEA [None]
